FAERS Safety Report 7293714-X (Version None)
Quarter: 2011Q1

REPORT INFORMATION
  Report Type: 
  Country: None (occurrence: None)
  Receive Date: 20110215
  Receipt Date: 20110209
  Transmission Date: 20110831
  Serious: Yes (Hospitalization)
  Sender: FDA-Public Use
  Company Number: B0699989A

PATIENT
  Sex: Female

DRUGS (4)
  1. CEFTAZIDIME [Suspect]
     Indication: BRONCHITIS
     Dosage: 1G PER DAY
     Route: 030
     Dates: start: 20110111, end: 20110114
  2. BENTELAN [Concomitant]
     Route: 030
  3. BISOLVON [Concomitant]
     Route: 048
  4. COUMADIN [Concomitant]
     Route: 048

REACTIONS (6)
  - VOMITING [None]
  - ABDOMINAL PAIN UPPER [None]
  - LIP SWELLING [None]
  - HEADACHE [None]
  - PRURITUS GENERALISED [None]
  - ABDOMINAL DISTENSION [None]
